FAERS Safety Report 9354664 (Version 6)
Quarter: 2013Q3

REPORT INFORMATION
  Report Type: Spontaneous
  Country: US (occurrence: US)
  Receive Date: 20130618
  Receipt Date: 20130821
  Transmission Date: 20140515
  Serious: Yes (Other)
  Sender: FDA-Public Use
  Company Number: US-009507513-1306USA007001

PATIENT
  Age: 45 Year
  Sex: Female

DRUGS (2)
  1. PEG-INTRON [Suspect]
     Indication: HEPATITIS C
     Dosage: REDIPEN
     Dates: start: 20130609
  2. RIBASPHERE [Suspect]
     Indication: HEPATITIS C
     Dosage: 200MG, THREE CAPSULES, BID
     Route: 048
     Dates: start: 20130609

REACTIONS (17)
  - Urinary retention [Unknown]
  - Ear infection bacterial [Unknown]
  - Ear pain [Unknown]
  - Headache [Unknown]
  - Abdominal pain upper [Unknown]
  - Stomatitis [Unknown]
  - Vomiting [Unknown]
  - Headache [Unknown]
  - Arthralgia [Unknown]
  - Malaise [Unknown]
  - Pain [Unknown]
  - Abdominal discomfort [Unknown]
  - Musculoskeletal discomfort [Unknown]
  - Headache [Unknown]
  - Nervousness [Unknown]
  - Nausea [Unknown]
  - Vomiting [Unknown]
